FAERS Safety Report 10348028 (Version 2)
Quarter: 2014Q3

REPORT INFORMATION
  Report Type: Spontaneous
  Country: FR (occurrence: FR)
  Receive Date: 20140729
  Receipt Date: 20140916
  Transmission Date: 20150326
  Serious: Yes (Hospitalization)
  Sender: FDA-Public Use
  Company Number: PHHY2014FR091820

PATIENT
  Age: 16 Year
  Sex: Male

DRUGS (3)
  1. TEGRETOL [Suspect]
     Active Substance: CARBAMAZEPINE
     Indication: EPILEPSY
     Dosage: 200 MG IN MORNING AND 400 MG IN EVENING
     Route: 048
  2. DEPAKINE CRONO [Suspect]
     Active Substance: VALPROIC ACID
     Indication: EPILEPSY
     Dosage: 500 MG, BID
     Route: 048
  3. DIHYDAN [Suspect]
     Active Substance: PHENYTOIN
     Indication: EPILEPSY
     Dosage: 100 MG, BID
     Route: 048
     Dates: start: 201405

REACTIONS (11)
  - Colitis [Recovering/Resolving]
  - Weight decreased [None]
  - Drug intolerance [None]
  - Inflammatory bowel disease [None]
  - Nausea [None]
  - Colitis [None]
  - Vomiting [None]
  - General physical health deterioration [None]
  - Pericardial effusion [None]
  - Pericarditis [Recovering/Resolving]
  - Decreased appetite [None]

NARRATIVE: CASE EVENT DATE: 20140707
